FAERS Safety Report 8453168-4 (Version None)
Quarter: 2012Q2

REPORT INFORMATION
  Report Type: 
  Country: None (occurrence: None)
  Receive Date: 20120620
  Receipt Date: 20120515
  Transmission Date: 20120825
  Serious: No
  Sender: FDA-Public Use
  Company Number: US-VERTEX PHARMACEUTICALS INC.-AE-2012-006833

PATIENT
  Sex: Female
  Weight: 61.29 kg

DRUGS (3)
  1. PEG-INTRON [Concomitant]
     Indication: HEPATITIS C
     Route: 058
     Dates: start: 20111130, end: 20120401
  2. RIBAVIRIN [Concomitant]
     Indication: HEPATITIS C
     Dates: start: 20111130, end: 20120401
  3. INCIVEK [Suspect]
     Indication: HEPATITIS C
     Route: 048
     Dates: start: 20111130, end: 20120222

REACTIONS (7)
  - LYMPHADENOPATHY [None]
  - DYSPNOEA [None]
  - MOBILITY DECREASED [None]
  - ANAEMIA [None]
  - RETCHING [None]
  - VOMITING [None]
  - CHEST DISCOMFORT [None]
